FAERS Safety Report 17068925 (Version 1)
Quarter: 2019Q4

REPORT INFORMATION
  Report Type: Spontaneous
  Country: US (occurrence: US)
  Receive Date: 20191024
  Receipt Date: 20191024
  Transmission Date: 20200122
  Serious: No
  Sender: FDA-Public Use
  Company Number: None

PATIENT
  Age: 68 Year
  Sex: Male

DRUGS (16)
  1. BABY ASPIRIN [Concomitant]
     Active Substance: ASPIRIN
  2. COSENTYX [Concomitant]
     Active Substance: SECUKINUMAB
  3. TRAVATAN [Concomitant]
     Active Substance: TRAVOPROST
  4. ATENOLOL. [Concomitant]
     Active Substance: ATENOLOL
  5. PURE PROBIOTIC [Concomitant]
  6. RESTASIS [Concomitant]
     Active Substance: CYCLOSPORINE
  7. EZETIMIBE. [Concomitant]
     Active Substance: EZETIMIBE
  8. AMLODIPINE [Concomitant]
     Active Substance: AMLODIPINE BESYLATE
  9. LOSARTAN POTASSIUM. [Concomitant]
     Active Substance: LOSARTAN POTASSIUM
  10. VITAMIN D3 [Concomitant]
     Active Substance: CHOLECALCIFEROL
  11. VITAMIN C [Concomitant]
     Active Substance: ASCORBIC ACID
  12. ROSUVASTATIN. [Concomitant]
     Active Substance: ROSUVASTATIN
  13. COSENTYX [Suspect]
     Active Substance: SECUKINUMAB
     Indication: ANKYLOSING SPONDYLITIS
     Dosage: ?          QUANTITY:2 DF DOSAGE FORM;?
     Dates: start: 20190923
  14. MULTI VITAMIN [Concomitant]
     Active Substance: VITAMINS
  15. COSOPT PE [Concomitant]
  16. POTASSIUM GLUCONATE [Concomitant]
     Active Substance: POTASSIUM GLUCONATE

REACTIONS (1)
  - Paraesthesia [None]

NARRATIVE: CASE EVENT DATE: 20191023
